FAERS Safety Report 7309250-8 (Version None)
Quarter: 2011Q1

REPORT INFORMATION
  Report Type: 
  Country: None (occurrence: None)
  Receive Date: 20110223
  Receipt Date: 20110209
  Transmission Date: 20110831
  Serious: Yes (Other)
  Sender: FDA-Public Use
  Company Number: AR-ROCHE-656986

PATIENT
  Sex: Female
  Weight: 88 kg

DRUGS (6)
  1. FURSEMIDE [Concomitant]
     Indication: FLUID RETENTION
     Route: 048
     Dates: start: 20090101
  2. MAGNESIUM [Concomitant]
     Route: 048
     Dates: start: 20090704
  3. BLINDED BI 201335 [Suspect]
     Indication: HEPATITIS C
     Route: 048
     Dates: start: 20090421, end: 20090924
  4. PEGINTERFERON ALFA-2A [Suspect]
     Indication: HEPATITIS C
     Dosage: STRENGTH: 180 UG/ML, FORMULATION: SOLUTUION FOR INJECTION
     Route: 058
     Dates: start: 20090421, end: 20090924
  5. RIBAVIRIN [Suspect]
     Indication: HEPATITIS C
     Route: 048
     Dates: start: 20090421, end: 20090924
  6. POTASSIUM CHLORIDE [Concomitant]
     Route: 048
     Dates: start: 20090704

REACTIONS (1)
  - ARTERIOSPASM CORONARY [None]
